FAERS Safety Report 21766613 (Version 1)
Quarter: 2022Q4

REPORT INFORMATION
  Report Type: Spontaneous
  Country: AU (occurrence: AU)
  Receive Date: 20221222
  Receipt Date: 20221222
  Transmission Date: 20230112
  Serious: Yes (Hospitalization)
  Sender: FDA-Public Use
  Company Number: AU-TASMAN PHARMA, INC.-2022TSM01162

PATIENT
  Sex: Male
  Weight: 76.7 kg

DRUGS (11)
  1. CLOZAPINE [Suspect]
     Active Substance: CLOZAPINE
     Dosage: 12.5 MG
     Dates: start: 20220726, end: 20220731
  2. CLOZAPINE [Suspect]
     Active Substance: CLOZAPINE
     Dosage: 200 MG
     Dates: start: 20220815, end: 20220821
  3. CLOZAPINE [Suspect]
     Active Substance: CLOZAPINE
     Dosage: 250 MG
     Dates: start: 20220822, end: 20220906
  4. CLOZAPINE [Suspect]
     Active Substance: CLOZAPINE
     Dosage: 300 MG
     Dates: start: 20220907, end: 20221017
  5. CLOZAPINE [Suspect]
     Active Substance: CLOZAPINE
     Dosage: 250 MG
     Dates: start: 20221018, end: 20221110
  6. CLOZAPINE [Suspect]
     Active Substance: CLOZAPINE
     Dosage: 300 MG
     Dates: start: 20221114, end: 20221120
  7. CLOZAPINE [Suspect]
     Active Substance: CLOZAPINE
     Dosage: 250 MG
     Dates: start: 20221121, end: 20221127
  8. CLOZAPINE [Suspect]
     Active Substance: CLOZAPINE
     Dosage: 150 MG
     Dates: start: 20221128, end: 2022
  9. CLOZAPINE [Suspect]
     Active Substance: CLOZAPINE
     Dosage: 125 MG
     Dates: start: 2022, end: 20221203
  10. VERSACLOZ [Suspect]
     Active Substance: CLOZAPINE
     Dosage: 100 MG
     Dates: start: 20220801, end: 20220814
  11. VERSACLOZ [Suspect]
     Active Substance: CLOZAPINE
     Dosage: 300 MG
     Dates: start: 20221111, end: 20221113

REACTIONS (3)
  - Hospitalisation [Recovered/Resolved]
  - Treatment noncompliance [Not Recovered/Not Resolved]
  - Inappropriate schedule of product discontinuation [Recovered/Resolved]

NARRATIVE: CASE EVENT DATE: 20220101
